FAERS Safety Report 9941485 (Version 1)
Quarter: 2014Q1

REPORT INFORMATION
  Report Type: Report from Study
  Country: US (occurrence: US)
  Receive Date: 20140303
  Receipt Date: 20140303
  Transmission Date: 20141002
  Serious: No
  Sender: FDA-Public Use
  Company Number: US-ABBVIE-13P-163-1041027-00

PATIENT
  Sex: Female

DRUGS (4)
  1. HUMIRA [Suspect]
     Indication: PRODUCT USED FOR UNKNOWN INDICATION
     Dosage: DAY ONE
     Route: 058
     Dates: start: 201301, end: 201301
  2. HUMIRA [Suspect]
     Dosage: DAY TWO
  3. HUMIRA [Suspect]
     Dosage: DAY 15
  4. PENICILLIN [Concomitant]
     Indication: TOOTH INFECTION

REACTIONS (1)
  - Tooth infection [Unknown]
